FAERS Safety Report 18742867 (Version 3)
Quarter: 2021Q2

REPORT INFORMATION
  Report Type: Report from Study
  Country: None (occurrence: CA)
  Receive Date: 20210115
  Receipt Date: 20210407
  Transmission Date: 20210717
  Serious: Yes (Other)
  Sender: FDA-Public Use
  Company Number: CA-ABBVIE-21K-028-3728748-00

PATIENT
  Age: 68 Year
  Sex: Female
  Weight: 87.17 kg

DRUGS (2)
  1. HUMIRA [Suspect]
     Active Substance: ADALIMUMAB
     Route: 058
     Dates: start: 2020
  2. HUMIRA [Suspect]
     Active Substance: ADALIMUMAB
     Indication: CROHN^S DISEASE
     Route: 058
     Dates: start: 20170927, end: 2020

REACTIONS (7)
  - Faeces hard [Unknown]
  - Crohn^s disease [Unknown]
  - Dizziness [Unknown]
  - SARS-CoV-2 test positive [Unknown]
  - Blood magnesium decreased [Unknown]
  - Ear disorder [Unknown]
  - Faecaloma [Unknown]

NARRATIVE: CASE EVENT DATE: 2020
